FAERS Safety Report 18574461 (Version 1)
Quarter: 2020Q4

REPORT INFORMATION
  Report Type: Spontaneous
  Country: US (occurrence: US)
  Receive Date: 20201202
  Receipt Date: 20201202
  Transmission Date: 20210114
  Serious: Yes (Hospitalization)
  Sender: FDA-Public Use
  Company Number: None

PATIENT
  Age: 78 Year
  Sex: Male
  Weight: 78 kg

DRUGS (1)
  1. APIXABAN (APIXABAN 5MG TAB) [Suspect]
     Active Substance: APIXABAN
     Route: 048
     Dates: start: 20190405

REACTIONS (6)
  - Somnolence [None]
  - Dyspnoea [None]
  - Chest pain [None]
  - Lethargy [None]
  - Gastric haemorrhage [None]
  - Oesophageal ulcer [None]

NARRATIVE: CASE EVENT DATE: 20201030
